FAERS Safety Report 21521188 (Version 1)
Quarter: 2022Q4

REPORT INFORMATION
  Report Type: Spontaneous
  Country: CA (occurrence: CA)
  Receive Date: 20221028
  Receipt Date: 20221028
  Transmission Date: 20230113
  Serious: Yes (Hospitalization, Other)
  Sender: FDA-Public Use
  Company Number: CA-HALEON-CACH2022AMR040808

PATIENT

DRUGS (1)
  1. IBUPROFEN [Suspect]
     Active Substance: IBUPROFEN
     Indication: Product used for unknown indication
     Dosage: UNK

REACTIONS (6)
  - Anaemia [Unknown]
  - Anastomotic ulcer haemorrhage [Unknown]
  - Haematemesis [Unknown]
  - Haemodynamic instability [Unknown]
  - Haemoglobin abnormal [Unknown]
  - Melaena [Unknown]
